FAERS Safety Report 21563515 (Version 1)
Quarter: 2022Q4

REPORT INFORMATION
  Report Type: Spontaneous
  Country: CA (occurrence: CA)
  Receive Date: 20221108
  Receipt Date: 20221108
  Transmission Date: 20230113
  Serious: Yes (Other)
  Sender: FDA-Public Use
  Company Number: CA-BRISTOL-MYERS SQUIBB COMPANY-2022-132360

PATIENT
  Age: 36 Year
  Sex: Female

DRUGS (70)
  1. ORENCIA [Suspect]
     Active Substance: ABATACEPT
     Indication: Product used for unknown indication
     Route: 065
  2. ABACAVIR SULFATE [Concomitant]
     Active Substance: ABACAVIR SULFATE
     Indication: Product used for unknown indication
     Route: 065
  3. ABACAVIR SULFATE\LAMIVUDINE [Concomitant]
     Active Substance: ABACAVIR SULFATE\LAMIVUDINE
     Indication: Product used for unknown indication
     Route: 065
  4. ACETAMINOPHEN\OXYCODONE HYDROCHLORIDE [Concomitant]
     Active Substance: ACETAMINOPHEN\OXYCODONE HYDROCHLORIDE
     Indication: Product used for unknown indication
     Route: 065
  5. ACTEMRA [Concomitant]
     Active Substance: TOCILIZUMAB
     Indication: Rheumatoid arthritis
     Route: 058
  6. ADVAIR HFA [Concomitant]
     Active Substance: FLUTICASONE PROPIONATE\SALMETEROL XINAFOATE
     Indication: Product used for unknown indication
     Route: 065
  7. ALBUTEROL SULFATE [Concomitant]
     Active Substance: ALBUTEROL SULFATE
     Indication: Product used for unknown indication
     Dosage: METERED-DOSE (AEROSOL)
     Route: 065
  8. ALBUTEROL [Concomitant]
     Active Substance: ALBUTEROL
     Indication: Product used for unknown indication
     Route: 065
  9. ALPRAZOLAM [Concomitant]
     Active Substance: ALPRAZOLAM
     Indication: Product used for unknown indication
     Route: 065
  10. BUPROPION HYDROCHLORIDE [Concomitant]
     Active Substance: BUPROPION HYDROCHLORIDE
     Indication: Product used for unknown indication
     Route: 065
  11. CETIRIZINE [Concomitant]
     Active Substance: CETIRIZINE HYDROCHLORIDE
     Indication: Product used for unknown indication
     Route: 065
  12. CHLORMEZANONE [Concomitant]
     Active Substance: CHLORMEZANONE
     Indication: Product used for unknown indication
     Route: 065
  13. CITALOPRAM HYDROBROMIDE [Concomitant]
     Active Substance: CITALOPRAM HYDROBROMIDE
     Indication: Product used for unknown indication
     Route: 065
  14. CLONIDINE [Concomitant]
     Active Substance: CLONIDINE
     Indication: Eczema
     Route: 065
  15. CLONIDINE HYDROCHLORIDE [Concomitant]
     Active Substance: CLONIDINE HYDROCHLORIDE
     Indication: Product used for unknown indication
     Route: 065
  16. CODEINE [Concomitant]
     Active Substance: CODEINE
     Indication: Product used for unknown indication
     Route: 065
  17. CYCLOBENZAPRINE HYDROCHLORIDE [Concomitant]
     Active Substance: CYCLOBENZAPRINE HYDROCHLORIDE
     Indication: Eczema
     Route: 065
  18. DEMEROL [Concomitant]
     Active Substance: MEPERIDINE HYDROCHLORIDE
     Indication: Product used for unknown indication
     Route: 065
  19. DICLOFENAC SODIUM [Concomitant]
     Active Substance: DICLOFENAC SODIUM
     Indication: Product used for unknown indication
     Route: 065
  20. DIPHENHYDRAMINE [Concomitant]
     Active Substance: DIPHENHYDRAMINE
     Indication: Product used for unknown indication
     Route: 065
  21. DIPHENHYDRAMINE [Concomitant]
     Active Substance: DIPHENHYDRAMINE
     Route: 065
  22. DOLUTEGRAVIR SODIUM [Concomitant]
     Active Substance: DOLUTEGRAVIR SODIUM
     Indication: Product used for unknown indication
     Route: 065
  23. ENBREL [Concomitant]
     Active Substance: ETANERCEPT
     Indication: Rheumatoid arthritis
     Route: 065
  24. FLOVENT [Concomitant]
     Active Substance: FLUTICASONE PROPIONATE
     Indication: Product used for unknown indication
     Route: 065
  25. FLUCONAZOLE [Concomitant]
     Active Substance: FLUCONAZOLE
     Indication: Product used for unknown indication
     Route: 065
  26. FLUTICASONE PROPIONATE\SALMETEROL XINAFOATE [Concomitant]
     Active Substance: FLUTICASONE PROPIONATE\SALMETEROL XINAFOATE
     Indication: Product used for unknown indication
     Route: 065
  27. FUROSEMIDE [Concomitant]
     Active Substance: FUROSEMIDE
     Indication: Product used for unknown indication
     Route: 065
  28. GABAPENTIN [Concomitant]
     Active Substance: GABAPENTIN
     Indication: Product used for unknown indication
     Route: 065
  29. HUMIRA [Concomitant]
     Active Substance: ADALIMUMAB
     Indication: Product used for unknown indication
     Dosage: SOLUTION SUBCUTANEOUS
     Route: 058
  30. HYDROMORPHONE [Concomitant]
     Active Substance: HYDROMORPHONE
     Indication: Product used for unknown indication
     Route: 065
  31. HYDROMORPHONE HYDROCHLORIDE [Concomitant]
     Active Substance: HYDROMORPHONE HYDROCHLORIDE
     Indication: Product used for unknown indication
     Dosage: TABLET (EXTENDED-RELEASE)
     Route: 065
  32. KETOPROFEN [Concomitant]
     Active Substance: KETOPROFEN
     Indication: Product used for unknown indication
     Route: 065
  33. LYRICA [Concomitant]
     Active Substance: PREGABALIN
     Indication: Pain
     Route: 065
  34. LYRICA [Concomitant]
     Active Substance: PREGABALIN
     Indication: Herpes zoster
  35. METHYLPREDNISOLONE ACETATE [Concomitant]
     Active Substance: METHYLPREDNISOLONE ACETATE
     Indication: Product used for unknown indication
     Route: 065
  36. METHYLPREDNISOLONE SODIUM SUCCINATE [Concomitant]
     Active Substance: METHYLPREDNISOLONE SODIUM SUCCINATE
     Indication: Product used for unknown indication
     Route: 065
  37. MONTELUKAST SODIUM [Concomitant]
     Active Substance: MONTELUKAST SODIUM
     Indication: Product used for unknown indication
     Route: 065
  38. MORPHINE SULFATE [Concomitant]
     Active Substance: MORPHINE SULFATE
     Indication: Product used for unknown indication
     Route: 065
  39. MOXIFLOXACIN HYDROCHLORIDE [Concomitant]
     Active Substance: MOXIFLOXACIN HYDROCHLORIDE
     Indication: Product used for unknown indication
     Route: 058
  40. NORTRIPTYLINE [Concomitant]
     Active Substance: NORTRIPTYLINE
     Indication: Product used for unknown indication
     Route: 065
  41. NORTRIPTYLINE HYDROCHLORIDE [Concomitant]
     Active Substance: NORTRIPTYLINE HYDROCHLORIDE
     Indication: Product used for unknown indication
     Route: 065
  42. ONDANSETRON [Concomitant]
     Active Substance: ONDANSETRON
     Indication: Product used for unknown indication
     Route: 065
  43. PANTOPRAZOLE MAGNESIUM [Concomitant]
     Active Substance: PANTOPRAZOLE MAGNESIUM
     Indication: Product used for unknown indication
     Route: 065
  44. PANTOPRAZOLE SODIUM [Concomitant]
     Active Substance: PANTOPRAZOLE SODIUM
     Indication: Product used for unknown indication
     Route: 065
  45. HERBALS\PLANTAGO INDICA WHOLE [Concomitant]
     Active Substance: HERBALS\PLANTAGO INDICA WHOLE
     Indication: Product used for unknown indication
     Route: 065
  46. PROGESTERONE [Concomitant]
     Active Substance: PROGESTERONE
     Indication: Product used for unknown indication
     Route: 030
  47. QUETIAPINE FUMARATE [Concomitant]
     Active Substance: QUETIAPINE FUMARATE
     Indication: Product used for unknown indication
     Route: 065
  48. RANITIDINE HYDROCHLORIDE [Concomitant]
     Active Substance: RANITIDINE HYDROCHLORIDE
     Indication: Product used for unknown indication
     Route: 065
  49. CETIRIZINE HYDROCHLORIDE [Concomitant]
     Active Substance: CETIRIZINE HYDROCHLORIDE
     Indication: Product used for unknown indication
     Route: 065
  50. REMICADE [Concomitant]
     Active Substance: INFLIXIMAB
     Indication: Product used for unknown indication
     Dosage: POWDER FOR SOLUTION INTRAVENOUS
     Route: 042
  51. RESTORIL [Concomitant]
     Active Substance: TEMAZEPAM
     Indication: Product used for unknown indication
     Route: 065
  52. RITUXIMAB [Concomitant]
     Active Substance: RITUXIMAB
     Indication: Rheumatoid arthritis
     Route: 042
  53. ALBUTEROL [Concomitant]
     Active Substance: ALBUTEROL
     Indication: Product used for unknown indication
     Route: 065
  54. SENNA LEAF [Concomitant]
     Active Substance: SENNA LEAF
     Indication: Product used for unknown indication
     Route: 065
  55. SENNA LEAF [Concomitant]
     Active Substance: SENNA LEAF
     Indication: Product used for unknown indication
     Route: 048
  56. SENNOSIDES [Concomitant]
     Active Substance: SENNOSIDES
     Indication: Product used for unknown indication
     Route: 065
  57. SENNOSIDES [Concomitant]
     Active Substance: SENNOSIDES
     Route: 065
  58. SENOKOT [Concomitant]
     Active Substance: SENNOSIDES
     Indication: Product used for unknown indication
     Route: 065
  59. SINGULAIR [Concomitant]
     Active Substance: MONTELUKAST SODIUM
     Indication: Product used for unknown indication
     Route: 065
  60. TEMAZEPAM [Concomitant]
     Active Substance: TEMAZEPAM
     Indication: Product used for unknown indication
     Route: 065
  61. TYLENOL [Concomitant]
     Active Substance: ACETAMINOPHEN
     Indication: Product used for unknown indication
     Route: 065
  62. VENLAFAXINE HYDROCHLORIDE [Concomitant]
     Active Substance: VENLAFAXINE HYDROCHLORIDE
     Indication: Product used for unknown indication
     Route: 065
  63. VENTOLIN [Concomitant]
     Active Substance: ALBUTEROL SULFATE
     Indication: Product used for unknown indication
     Route: 065
  64. VITAMIN C [Concomitant]
     Active Substance: ASCORBIC ACID
     Indication: Product used for unknown indication
     Route: 065
  65. VITAMIN C [Concomitant]
     Active Substance: ASCORBIC ACID
     Route: 065
  66. VITAMIN C [Concomitant]
     Active Substance: ASCORBIC ACID
     Route: 065
  67. WELLBUTRIN [Concomitant]
     Active Substance: BUPROPION HYDROCHLORIDE
     Indication: Product used for unknown indication
     Dosage: TABLET (EXTENDED-RELEASE)
     Route: 065
  68. XELJANZ [Concomitant]
     Active Substance: TOFACITINIB CITRATE
     Indication: Rheumatoid arthritis
     Route: 048
  69. XELJANZ [Concomitant]
     Active Substance: TOFACITINIB CITRATE
     Indication: Herpes zoster
  70. ZOPICLONE [Concomitant]
     Active Substance: ZOPICLONE
     Indication: Product used for unknown indication
     Route: 065

REACTIONS (2)
  - Maternal exposure during pregnancy [Recovered/Resolved]
  - Foetal death [Unknown]
